FAERS Safety Report 4383505-1 (Version None)
Quarter: 2004Q2

REPORT INFORMATION
  Report Type: 
  Country: None (occurrence: None)
  Receive Date: 20040616
  Receipt Date: 20040504
  Transmission Date: 20050107
  Serious: Yes (Other)
  Sender: FDA-Public Use
  Company Number: US-JNJFOC-20040501316

PATIENT
  Sex: Female

DRUGS (2)
  1. ORTHO TRI-CYCLEN LO [Suspect]
     Indication: CONTRACEPTION
     Dosage: 1 DOSE(S), 1 IN 1 DAY; ORAL
     Route: 048
  2. ESTROGEN-ONLY PILL (ESTROGEN NOS) [Concomitant]

REACTIONS (3)
  - DRUG EXPOSURE DURING PREGNANCY [None]
  - MENSTRUATION IRREGULAR [None]
  - PREGNANCY ON ORAL CONTRACEPTIVE [None]
